FAERS Safety Report 16382049 (Version 3)
Quarter: 2019Q3

REPORT INFORMATION
  Report Type: Spontaneous
  Country: DE (occurrence: DE)
  Receive Date: 20190603
  Receipt Date: 20190924
  Transmission Date: 20191004
  Serious: Yes (Other)
  Sender: FDA-Public Use
  Company Number: DE-ROCHE-2328344

PATIENT
  Age: 60 Year
  Sex: Male

DRUGS (1)
  1. ACTILYSE [Suspect]
     Active Substance: ALTEPLASE
     Indication: PRODUCT USED FOR UNKNOWN INDICATION
     Route: 065
     Dates: start: 20180529, end: 20180529

REACTIONS (8)
  - Speech disorder [Recovered/Resolved]
  - Off label use [Unknown]
  - Atrial fibrillation [Unknown]
  - Hemiplegia [Recovered/Resolved]
  - Brain stem infarction [Recovered/Resolved]
  - Cerebrovascular accident [Recovered/Resolved]
  - Post stroke depression [Unknown]
  - Hemiparesis [Recovered/Resolved]

NARRATIVE: CASE EVENT DATE: 20180529
